FAERS Safety Report 14083494 (Version 2)
Quarter: 2017Q4

REPORT INFORMATION
  Report Type: Spontaneous
  Country: US (occurrence: US)
  Receive Date: 20171013
  Receipt Date: 20171127
  Transmission Date: 20180321
  Serious: No
  Sender: FDA-Public Use
  Company Number: US-PFIZER INC-2017442722

PATIENT
  Age: 56 Year
  Sex: Female
  Weight: 91 kg

DRUGS (2)
  1. METHYLPREDNISOLONE. [Suspect]
     Active Substance: METHYLPREDNISOLONE
     Indication: ROOT CANAL INFECTION
     Dosage: 4 MG, FOLLOWING TAPERING DOSE INSTRUCTIONS
     Dates: start: 20171008
  2. PROTONIX [Concomitant]
     Active Substance: PANTOPRAZOLE SODIUM
     Dosage: UNK

REACTIONS (3)
  - Poor quality drug administered [Recovered/Resolved]
  - Dysgeusia [Recovered/Resolved]
  - Product quality issue [Recovered/Resolved]

NARRATIVE: CASE EVENT DATE: 20171008
